FAERS Safety Report 11690608 (Version 1)
Quarter: 2015Q4

REPORT INFORMATION
  Report Type: Spontaneous
  Country: GB (occurrence: GB)
  Receive Date: 20151102
  Receipt Date: 20151102
  Transmission Date: 20160304
  Serious: Yes (Life-Threatening, Hospitalization)
  Sender: FDA-Public Use
  Company Number: GB-TEVA-604727ACC

PATIENT
  Age: 52 Year
  Sex: Female

DRUGS (5)
  1. QVAR [Concomitant]
     Active Substance: BECLOMETHASONE DIPROPIONATE
     Indication: ASTHMA
     Dosage: 4 DOSAGE FORMS DAILY;
     Route: 050
  2. VENLAFAXINE [Suspect]
     Active Substance: VENLAFAXINE HYDROCHLORIDE
     Indication: DEPRESSION
     Dosage: 37.5 MILLIGRAM DAILY;
     Route: 048
     Dates: start: 201507
  3. SALBUTAMOL [Concomitant]
     Active Substance: ALBUTEROL
     Route: 055
  4. AMITRIPTYLINE [Suspect]
     Active Substance: AMITRIPTYLINE
     Dosage: 10 MILLIGRAM DAILY; AT NIGHT - TO BE STOPPED; DAILY DOSE: 10MILLIGRAM
     Route: 048
  5. VENLAFAXINE [Suspect]
     Active Substance: VENLAFAXINE HYDROCHLORIDE
     Indication: DEPRESSION
     Dosage: 75 MILLIGRAM DAILY; MODIFIED RELEASE; DAILY DOSE: 75MILLIGRAM
     Route: 048
     Dates: end: 201507

REACTIONS (3)
  - Acute myocardial infarction [Recovering/Resolving]
  - Chest pain [Unknown]
  - Troponin I increased [Unknown]

NARRATIVE: CASE EVENT DATE: 20151011
